FAERS Safety Report 6294644-2 (Version None)
Quarter: 2009Q3

REPORT INFORMATION
  Report Type: 
  Country: None (occurrence: None)
  Receive Date: 20090731
  Receipt Date: 20090731
  Transmission Date: 20100115
  Serious: Yes (Life-Threatening)
  Sender: FDA-Public Use
  Company Number: None

PATIENT
  Age: 63 Year
  Sex: Female
  Weight: 50.8029 kg

DRUGS (1)
  1. BONIVA [Suspect]
     Indication: OSTEOPOROSIS
     Dosage: 1 A MONTH
     Dates: start: 20061001, end: 20061201

REACTIONS (3)
  - ARTHRITIS [None]
  - NON-HODGKIN'S LYMPHOMA [None]
  - PAIN IN EXTREMITY [None]
